FAERS Safety Report 7282134-X (Version None)
Quarter: 2011Q1

REPORT INFORMATION
  Report Type: 
  Country: None (occurrence: None)
  Receive Date: 20110208
  Receipt Date: 20110202
  Transmission Date: 20110831
  Serious: Yes (Death, Life-Threatening)
  Sender: FDA-Public Use
  Company Number: JP-PFIZER INC-2010081927

PATIENT
  Age: 3 Week
  Sex: Female
  Weight: 1.874 kg

DRUGS (17)
  1. DORNER [Concomitant]
     Indication: PULMONARY HYPERTENSION
     Dosage: 1.33 UG, 3X/DAY
     Route: 048
     Dates: start: 20090308
  2. TRACLEER [Concomitant]
     Indication: PULMONARY HYPERTENSION
     Dosage: 1.875 MG, 2X/DAY
     Route: 048
     Dates: start: 20090314
  3. BOSMIN [Concomitant]
     Indication: CARDIAC FAILURE
     Dosage: 86 UG, DAY
     Route: 042
  4. SILDENAFIL CITRATE [Suspect]
     Indication: PULMONARY HYPERTENSION
     Dosage: UNK
     Dates: start: 20090307, end: 20090310
  5. SILDENAFIL CITRATE [Suspect]
     Dosage: UNK
     Route: 048
     Dates: start: 20090313, end: 20090314
  6. RASENAZOLIN [Concomitant]
     Indication: INFECTION
     Dosage: 50 MG, 1X/DAY
     Route: 042
     Dates: end: 20090311
  7. SILDENAFIL CITRATE [Suspect]
     Dosage: 0.5 MG, 3X/DAY
     Route: 048
     Dates: start: 20090314, end: 20090315
  8. DORMICUM FOR INJECTION [Concomitant]
     Indication: ANAESTHESIA
     Dosage: 18 MG, DAY
     Route: 042
  9. LASIX [Concomitant]
     Indication: RENAL FAILURE
     Dosage: 18.7 MG, DAY
     Route: 042
     Dates: end: 20090308
  10. MEYLON [Concomitant]
     Indication: CARDIAC FAILURE
     Dosage: 4 ML, 1X/DAY
     Route: 042
     Dates: end: 20090310
  11. WAKOBITAL [Concomitant]
     Indication: SEDATION
     Dosage: 7.5 MG, 2X/DAY
     Route: 054
     Dates: end: 20090323
  12. FLOLAN [Suspect]
     Indication: PULMONARY HYPERTENSION
     Dosage: 8.4 UG, DAY
     Route: 042
     Dates: start: 20090217, end: 20090308
  13. INOVAN [Concomitant]
     Indication: CARDIAC FAILURE
     Dosage: 21.5 MG, DAY
     Route: 042
     Dates: end: 20090402
  14. SILDENAFIL CITRATE [Suspect]
     Indication: RESPIRATORY DISORDER
     Dosage: UNK
     Route: 048
     Dates: start: 20090310, end: 20090312
  15. SILDENAFIL CITRATE [Suspect]
     Dosage: 0.5 MG, 4X/DAY
     Route: 048
     Dates: start: 20090315, end: 20090410
  16. FENTANYL [Concomitant]
     Indication: ANAESTHESIA
     Dosage: 180 UG, DAY
     Route: 042
  17. MANNITOL [Concomitant]
     Indication: RENAL FAILURE
     Dosage: 1.5 G, DAY
     Route: 042
     Dates: end: 20090308

REACTIONS (6)
  - PLEURAL EFFUSION [None]
  - SEPSIS [None]
  - PNEUMOTHORAX [None]
  - RENAL FAILURE [None]
  - DISSEMINATED INTRAVASCULAR COAGULATION [None]
  - HYPOTENSION [None]
